FAERS Safety Report 4700114-2 (Version None)
Quarter: 2005Q2

REPORT INFORMATION
  Report Type: 
  Country: None (occurrence: None)
  Receive Date: 20050624
  Receipt Date: 20050624
  Transmission Date: 20051028
  Serious: No
  Sender: FDA-Public Use
  Company Number: None

PATIENT
  Sex: Female
  Weight: 81.3 kg

DRUGS (3)
  1. CYTARABINE [Suspect]
     Dates: start: 20050610
  2. GM-CSF [Suspect]
  3. NEUPOGEN [Suspect]

REACTIONS (1)
  - THROMBOCYTOPENIA [None]
